FAERS Safety Report 8020581-9 (Version None)
Quarter: 2012Q1

REPORT INFORMATION
  Report Type: 
  Country: None (occurrence: None)
  Receive Date: 20120103
  Receipt Date: 20111221
  Transmission Date: 20120608
  Serious: Yes (Other)
  Sender: FDA-Public Use
  Company Number: US-ELI_LILLY_AND_COMPANY-US201101003119

PATIENT
  Sex: Female

DRUGS (20)
  1. AMLODIPINE [Concomitant]
     Indication: BLOOD PRESSURE ABNORMAL
     Dosage: 5 MG, UNK
  2. TRAMADOL HCL [Concomitant]
     Indication: PAIN
     Dosage: 50 MG, OTHER
  3. FORTEO [Suspect]
     Dosage: 20 UG, QD
     Route: 065
  4. POTASSIUM [Concomitant]
  5. METOPROLOL TARTRATE [Concomitant]
     Dosage: 50 MG, BID
  6. VITAMIN D [Concomitant]
  7. LODINE [Concomitant]
     Indication: PAIN
     Dosage: 1 DF, BID
  8. FORTEO [Suspect]
     Dosage: 20 UG, QD
     Dates: end: 20110401
  9. FORTEO [Suspect]
     Dosage: 20 UG, QD
  10. LASIX [Concomitant]
     Dosage: 20 MG, BID
  11. FORTEO [Suspect]
     Indication: OSTEOPOROSIS
     Dosage: 20 UG, DAILY (1/D)
     Route: 065
     Dates: start: 20100810
  12. FORTEO [Suspect]
     Dosage: 20 UG, DAILY (1/D)
     Route: 065
     Dates: end: 20110208
  13. CALCIUM ACETATE [Concomitant]
  14. SIMVASTATIN [Concomitant]
     Indication: BLOOD CHOLESTEROL ABNORMAL
     Dosage: 40 MG, UNK
  15. LEVOTHYROXINE SODIUM [Concomitant]
     Dosage: 100 UG, QD
  16. FORTEO [Suspect]
     Dosage: 20 UG, QD
     Route: 065
     Dates: start: 20110222
  17. FORTEO [Suspect]
     Dosage: 20 UG, QD
  18. REQUIP [Concomitant]
     Indication: LIMB DISCOMFORT
     Dosage: 0.25 MG, UNK
  19. HYDROXYZINE [Concomitant]
     Dosage: 25 MG, BID
  20. SERTRALINE HYDROCHLORIDE [Concomitant]
     Indication: NERVOUSNESS
     Dosage: 75 MG, UNK

REACTIONS (17)
  - MUSCULOSKELETAL PAIN [None]
  - MUSCLE SPASMS [None]
  - OEDEMA PERIPHERAL [None]
  - HEART VALVE INCOMPETENCE [None]
  - INJECTION SITE ERYTHEMA [None]
  - JOINT SWELLING [None]
  - MUSCULOSKELETAL CHEST PAIN [None]
  - INJECTION SITE MASS [None]
  - ARTHRALGIA [None]
  - BLOOD CALCIUM INCREASED [None]
  - BACK PAIN [None]
  - MUSCULOSKELETAL DISCOMFORT [None]
  - FATIGUE [None]
  - JOINT EFFUSION [None]
  - PAIN IN EXTREMITY [None]
  - INJECTION SITE HAEMATOMA [None]
  - PAIN [None]
